FAERS Safety Report 12907911 (Version 1)
Quarter: 2016Q4

REPORT INFORMATION
  Report Type: Spontaneous
  Country: US (occurrence: US)
  Receive Date: 20161103
  Receipt Date: 20161103
  Transmission Date: 20170207
  Serious: No
  Sender: FDA-Public Use
  Company Number: US-PFIZER INC-2016505422

PATIENT
  Age: 79 Year
  Sex: Female

DRUGS (4)
  1. ARTHROTEC [Suspect]
     Active Substance: DICLOFENAC SODIUM\MISOPROSTOL
  2. ROBAXIN [Suspect]
     Active Substance: METHOCARBAMOL
  3. TALWIN [Suspect]
     Active Substance: PENTAZOCINE LACTATE
  4. PERCOCET [Suspect]
     Active Substance: ACETAMINOPHEN\OXYCODONE HYDROCHLORIDE

REACTIONS (1)
  - Drug hypersensitivity [Unknown]
